FAERS Safety Report 5410199-6 (Version None)
Quarter: 2007Q3

REPORT INFORMATION
  Report Type: 
  Country: None (occurrence: None)
  Receive Date: 20070713
  Receipt Date: 20070417
  Transmission Date: 20080115
  Serious: No
  Sender: FDA-Public Use
  Company Number: 2007SP001384

PATIENT
  Age: 55 Year
  Sex: Female
  Weight: 45.3597 kg

DRUGS (12)
  1. LUNESTA [Suspect]
     Indication: INSOMNIA
     Dosage: 3 MG;HS;ORAL; 6MG;ORAL
     Route: 048
     Dates: start: 20070301, end: 20070101
  2. LUNESTA [Suspect]
     Indication: INSOMNIA
     Dosage: 3 MG;HS;ORAL; 6MG;ORAL
     Route: 048
     Dates: start: 20070401
  3. THIAMINE HCL [Concomitant]
  4. VITAMIN B-12 [Concomitant]
  5. FUROSEMIDE [Concomitant]
  6. LACTULOSE [Concomitant]
  7. MESANTOIN [Concomitant]
  8. VITAMIN K [Concomitant]
  9. SPIRONOLACTONE [Concomitant]
  10. PANTOPRAZOLE SODIUM [Concomitant]
  11. LEVAQUIN [Concomitant]
  12. VITAMIN CAP [Concomitant]

REACTIONS (1)
  - INSOMNIA [None]
